FAERS Safety Report 5451931-5 (Version None)
Quarter: 2007Q3

REPORT INFORMATION
  Report Type: 
  Country: None (occurrence: None)
  Receive Date: 20070912
  Receipt Date: 20070904
  Transmission Date: 20080115
  Serious: Yes (Death, Life-Threatening, Hospitalization)
  Sender: FDA-Public Use
  Company Number: 2007SP014406

PATIENT
  Age: 74 Year
  Sex: Female
  Weight: 68 kg

DRUGS (4)
  1. TEMOZOLOMIDE [Suspect]
     Indication: GLIOBLASTOMA
     Dosage: 180 MG;QD;PO
     Route: 048
     Dates: start: 20070424
  2. ZOFRAN [Concomitant]
  3. LEVOTHYROXINE SODIUM [Concomitant]
  4. CARBAMAZEPINE [Concomitant]

REACTIONS (4)
  - CARDIOVASCULAR INSUFFICIENCY [None]
  - FALL [None]
  - HAEMORRHAGE INTRACRANIAL [None]
  - LOSS OF CONSCIOUSNESS [None]
